FAERS Safety Report 9485475 (Version 1)
Quarter: 2013Q3

REPORT INFORMATION
  Report Type: Spontaneous
  Country: US (occurrence: US)
  Receive Date: 20130829
  Receipt Date: 20130829
  Transmission Date: 20140515
  Serious: No
  Sender: FDA-Public Use
  Company Number: US-BIOGENIDEC-2013BI078891

PATIENT
  Sex: 0

DRUGS (3)
  1. AVONEX [Suspect]
     Indication: MULTIPLE SCLEROSIS
     Route: 030
     Dates: start: 20000101
  2. AVONEX [Suspect]
     Indication: MULTIPLE SCLEROSIS
     Route: 030
  3. AVONEX [Suspect]
     Indication: MULTIPLE SCLEROSIS
     Route: 030

REACTIONS (8)
  - Drug administered at inappropriate site [Recovered/Resolved]
  - Wrong technique in drug usage process [Recovered/Resolved]
  - Migraine [Recovered/Resolved with Sequelae]
  - Drug withdrawal syndrome [Not Recovered/Not Resolved]
  - Neuralgia [Unknown]
  - Pain [Not Recovered/Not Resolved]
  - Fatigue [Recovered/Resolved with Sequelae]
  - Anxiety [Not Recovered/Not Resolved]
